FAERS Safety Report 4520883-4 (Version None)
Quarter: 2004Q4

REPORT INFORMATION
  Report Type: 
  Country: None (occurrence: None)
  Receive Date: 20041206
  Receipt Date: 20041119
  Transmission Date: 20050328
  Serious: Yes (Death, Hospitalization)
  Sender: FDA-Public Use
  Company Number: 9345

PATIENT
  Age: 58 Year
  Sex: Male

DRUGS (2)
  1. LEUCOVORIN CALCIUM [Suspect]
     Indication: METASTASIS
     Dosage: 75 MG, PO
     Route: 048
     Dates: start: 20040412, end: 20040725
  2. TEGAFUR URACIL [Suspect]
     Indication: METASTASIS
     Dosage: 400 MG PO
     Route: 048
     Dates: start: 20040412, end: 20040725

REACTIONS (7)
  - INTERSTITIAL LUNG DISEASE [None]
  - LUNG INFECTION PSEUDOMONAL [None]
  - PNEUMONIA BACTERIAL [None]
  - RESPIRATORY FAILURE [None]
  - SPUTUM CULTURE POSITIVE [None]
  - STAPHYLOCOCCAL INFECTION [None]
  - STENOTROPHOMONAS INFECTION [None]
